FAERS Safety Report 16867087 (Version 1)
Quarter: 2019Q3

REPORT INFORMATION
  Report Type: Report from Study
  Country: ES (occurrence: ES)
  Receive Date: 20190930
  Receipt Date: 20190930
  Transmission Date: 20191005
  Serious: Yes (Other)
  Sender: FDA-Public Use
  Company Number: ES-TEVA-2019-ES-1113977

PATIENT
  Age: 59 Year
  Sex: Male

DRUGS (4)
  1. XOTERNA BREEZHALER 85 MICROGRAMOS/ 43 MICROGRAMOS POLVO PARA INHALCION [Concomitant]
  2. DIAZEPAM (730A) [Concomitant]
     Active Substance: DIAZEPAM
  3. MIRTAZAPINA 30 MG COMPRIMIDO [Suspect]
     Active Substance: MIRTAZAPINE
     Indication: PSYCHOPATHIC PERSONALITY
     Dosage: 0-0-1, 30 MG PER DAY
     Route: 048
     Dates: start: 20190304, end: 20190510
  4. VENTOLIN [Concomitant]
     Active Substance: ALBUTEROL SULFATE

REACTIONS (1)
  - Long QT syndrome [Recovering/Resolving]

NARRATIVE: CASE EVENT DATE: 20190510
